FAERS Safety Report 17382058 (Version 1)
Quarter: 2020Q1

REPORT INFORMATION
  Report Type: Spontaneous
  Country: FR (occurrence: FR)
  Receive Date: 20200206
  Receipt Date: 20200206
  Transmission Date: 20200409
  Serious: Yes (Hospitalization)
  Sender: FDA-Public Use
  Company Number: FR-MYLANLABS-2020M1013175

PATIENT
  Age: 85 Year
  Sex: Female
  Weight: 59 kg

DRUGS (6)
  1. AIROMIR [Concomitant]
     Active Substance: ALBUTEROL SULFATE
     Dosage: UNK
  2. RAMIPRIL. [Suspect]
     Active Substance: RAMIPRIL
     Indication: HYPERTENSION
     Dosage: 5 MILLIGRAM, QD
     Route: 048
     Dates: end: 20191107
  3. LINEZOLID. [Suspect]
     Active Substance: LINEZOLID
     Indication: PYELONEPHRITIS ACUTE
     Dosage: 1200 MILLIGRAM, QD
     Route: 048
     Dates: start: 20191023, end: 20191106
  4. HYDROCHLOROTHIAZIDE. [Suspect]
     Active Substance: HYDROCHLOROTHIAZIDE
     Indication: HYPERTENSION
     Dosage: 12.5 MILLIGRAM, QD
     Route: 048
     Dates: end: 20191107
  5. BACTRIM [Suspect]
     Active Substance: SULFAMETHOXAZOLE\TRIMETHOPRIM
     Indication: PYELONEPHRITIS ACUTE
     Dosage: 2 DOSAGE FORM, QD
     Route: 048
     Dates: start: 20191023, end: 20191106
  6. ELEBRATO ELLIPTA [Concomitant]
     Active Substance: FLUTICASONE FUROATE\UMECLIDINIUM BROMIDE\VILANTEROL TRIFENATATE
     Dosage: UNK

REACTIONS (5)
  - Hyponatraemia [Recovered/Resolved]
  - Renal failure [Recovering/Resolving]
  - Diarrhoea [Recovered/Resolved]
  - Respiratory distress [Recovered/Resolved]
  - Vomiting [Recovered/Resolved]

NARRATIVE: CASE EVENT DATE: 201911
